FAERS Safety Report 14731608 (Version 3)
Quarter: 2018Q2

REPORT INFORMATION
  Report Type: Report from Study
  Country: US (occurrence: US)
  Receive Date: 20180407
  Receipt Date: 20180510
  Transmission Date: 20180711
  Serious: Yes (Other)
  Sender: FDA-Public Use
  Company Number: US-AMGEN-USASL2018044132

PATIENT
  Age: 66 Year
  Sex: Female

DRUGS (1)
  1. REPATHA [Suspect]
     Active Substance: EVOLOCUMAB
     Indication: BLOOD CHOLESTEROL INCREASED
     Dosage: 140 MG, Q2WK
     Route: 058
     Dates: start: 2017

REACTIONS (7)
  - Depression [Unknown]
  - Amnesia [Unknown]
  - Headache [Unknown]
  - Neck pain [Unknown]
  - Muscular weakness [Unknown]
  - Spondylitis [Unknown]
  - Myalgia [Unknown]
